FAERS Safety Report 4942737-1 (Version None)
Quarter: 2006Q1

REPORT INFORMATION
  Report Type: 
  Country: None (occurrence: None)
  Receive Date: 20060222
  Receipt Date: 20060207
  Transmission Date: 20060701
  Serious: Yes (Hospitalization)
  Sender: FDA-Public Use
  Company Number: THYM-10844

PATIENT
  Age: 37 Year
  Sex: Female
  Weight: 65 kg

DRUGS (4)
  1. THYMOGLOBULIN [Suspect]
     Indication: HEART TRANSPLANT
     Dosage: 75 MG QD IV
     Route: 042
     Dates: start: 20060103, end: 20060103
  2. THYMOGLOBULIN [Suspect]
     Indication: IMMUNOSUPPRESSION
     Dosage: 75 MG QD IV
     Route: 042
     Dates: start: 20060103, end: 20060103
  3. THYMOGLOBULIN [Suspect]
     Indication: HEART TRANSPLANT
     Dosage: 50 MG QD IV
     Route: 042
     Dates: start: 20060104, end: 20060105
  4. THYMOGLOBULIN [Suspect]
     Indication: IMMUNOSUPPRESSION
     Dosage: 50 MG QD IV
     Route: 042
     Dates: start: 20060104, end: 20060105

REACTIONS (5)
  - BLOOD GLUCOSE INCREASED [None]
  - HYPOTENSION [None]
  - LACTIC ACIDOSIS [None]
  - METABOLIC ACIDOSIS [None]
  - RIGHT VENTRICULAR FAILURE [None]
